FAERS Safety Report 4910123-6 (Version None)
Quarter: 2006Q1

REPORT INFORMATION
  Report Type: 
  Country: None (occurrence: None)
  Receive Date: 20060209
  Receipt Date: 20060131
  Transmission Date: 20060701
  Serious: Yes (Hospitalization, Disabling, Other)
  Sender: FDA-Public Use
  Company Number: 2006016557

PATIENT
  Sex: Male
  Weight: 103.8737 kg

DRUGS (1)
  1. DILANTIN [Suspect]
     Indication: GRAND MAL CONVULSION
     Dosage: 600 MG (100 MG, 6 IN 1 D), ORAL
     Route: 048
     Dates: start: 19930101

REACTIONS (4)
  - BODY HEIGHT DECREASED [None]
  - DRUG TOXICITY [None]
  - FALL [None]
  - OSTEOPENIA [None]
